FAERS Safety Report 17404387 (Version 3)
Quarter: 2020Q1

REPORT INFORMATION
  Report Type: Report from Study
  Country: US (occurrence: US)
  Receive Date: 20200211
  Receipt Date: 20200306
  Transmission Date: 20200409
  Serious: Yes (Hospitalization, Disabling, Other)
  Sender: FDA-Public Use
  Company Number: US-REGENERON PHARMACEUTICALS, INC.-2020-17552

PATIENT

DRUGS (3)
  1. CEMIPLIMAB [Suspect]
     Active Substance: CEMIPLIMAB
     Dosage: UNK
     Route: 042
     Dates: start: 20191104, end: 20191104
  2. PREDNISONE. [Suspect]
     Active Substance: PREDNISONE
     Indication: PRODUCT USED FOR UNKNOWN INDICATION
  3. CEMIPLIMAB [Suspect]
     Active Substance: CEMIPLIMAB
     Indication: SQUAMOUS CELL CARCINOMA OF SKIN
     Dosage: UNK
     Route: 042
     Dates: start: 201902

REACTIONS (12)
  - Surgery [Unknown]
  - Arthralgia [Recovered/Resolved]
  - Seizure [Unknown]
  - Visual impairment [Unknown]
  - Fatigue [Unknown]
  - Amnesia [Unknown]
  - Confusional state [Unknown]
  - Musculoskeletal stiffness [Unknown]
  - Decreased appetite [Unknown]
  - Arthritis [Unknown]
  - Dysphonia [Unknown]
  - Tremor [Unknown]

NARRATIVE: CASE EVENT DATE: 2019
